FAERS Safety Report 7996790-1 (Version None)
Quarter: 2011Q4

REPORT INFORMATION
  Report Type: 
  Country: None (occurrence: None)
  Receive Date: 20111221
  Receipt Date: 20111213
  Transmission Date: 20120403
  Serious: Yes (Other)
  Sender: FDA-Public Use
  Company Number: US-JNJFOC-20111206642

PATIENT
  Sex: Male

DRUGS (1)
  1. RISPERDAL [Suspect]
     Indication: DEPRESSION
     Route: 048
     Dates: start: 20111101, end: 20110101

REACTIONS (6)
  - INSOMNIA [None]
  - CONSTIPATION [None]
  - INTRACRANIAL PRESSURE INCREASED [None]
  - TREATMENT NONCOMPLIANCE [None]
  - ABNORMAL SENSATION IN EYE [None]
  - HEADACHE [None]
